FAERS Safety Report 8604687-9 (Version None)
Quarter: 2012Q3

REPORT INFORMATION
  Report Type: 
  Country: None (occurrence: None)
  Receive Date: 20120820
  Receipt Date: 20120814
  Transmission Date: 20120928
  Serious: Yes (Other)
  Sender: FDA-Public Use
  Company Number: PHHY2012AR066228

PATIENT
  Sex: Male

DRUGS (3)
  1. OLANZAPINE [Concomitant]
  2. BENZODIAZEPINES [Concomitant]
  3. CLOZAPINE [Suspect]
     Indication: SCHIZOPHRENIA, PARANOID TYPE
     Route: 048
     Dates: start: 20120427

REACTIONS (2)
  - MUMPS [None]
  - WHITE BLOOD CELL COUNT INCREASED [None]
